FAERS Safety Report 9138113 (Version 1)
Quarter: 2013Q1

REPORT INFORMATION
  Report Type: Report from Study
  Country: DE (occurrence: DE)
  Receive Date: 20130304
  Receipt Date: 20130304
  Transmission Date: 20140127
  Serious: Yes (Life-Threatening, Hospitalization)
  Sender: FDA-Public Use
  Company Number: DE-PFIZER INC-2013074948

PATIENT
  Age: 58 Year
  Sex: Female

DRUGS (3)
  1. DELIX [Suspect]
     Indication: HYPERTENSION
     Dosage: 10 MG, 1X/DAY
     Route: 048
     Dates: start: 20120201, end: 20121106
  2. TORASEMIDE [Suspect]
     Indication: OEDEMA PERIPHERAL
     Dosage: 10 MG, 1X/DAY
     Route: 048
     Dates: start: 20120201, end: 20121106
  3. FLUANXOL [Suspect]
     Indication: SCHIZOPHRENIA
     Dosage: 20 MG, UNK
     Route: 030

REACTIONS (1)
  - Hyponatraemia [Recovering/Resolving]
